FAERS Safety Report 15691721 (Version 3)
Quarter: 2019Q1

REPORT INFORMATION
  Report Type: Spontaneous
  Country: US (occurrence: US)
  Receive Date: 20181205
  Receipt Date: 20190219
  Transmission Date: 20190417
  Serious: No
  Sender: FDA-Public Use
  Company Number: US-STRONGBRIDGE BIOPHARMA-2018-STR-000401

PATIENT
  Sex: Female

DRUGS (3)
  1. KEVEYIS [Suspect]
     Active Substance: DICHLORPHENAMIDE
     Dosage: 1 DF, QD
     Route: 048
     Dates: start: 20181026, end: 2018
  2. KEVEYIS [Suspect]
     Active Substance: DICHLORPHENAMIDE
     Indication: FAMILIAL PERIODIC PARALYSIS
     Dosage: 1 DF, QD
     Route: 048
     Dates: start: 2018
  3. KEVEYIS [Suspect]
     Active Substance: DICHLORPHENAMIDE
     Dosage: 0.5 DF, QD
     Route: 048
     Dates: start: 2018, end: 2018

REACTIONS (4)
  - Intentional product use issue [Not Recovered/Not Resolved]
  - Dyspepsia [Recovering/Resolving]
  - Abdominal discomfort [Unknown]
  - Dyspnoea [Recovering/Resolving]

NARRATIVE: CASE EVENT DATE: 2018
